FAERS Safety Report 4341165-X (Version None)
Quarter: 2004Q2

REPORT INFORMATION
  Report Type: 
  Country: None (occurrence: None)
  Receive Date: 20040419
  Receipt Date: 20040407
  Transmission Date: 20050107
  Serious: Yes (Hospitalization)
  Sender: FDA-Public Use
  Company Number: FR-GLAXOSMITHKLINE-B0329474A

PATIENT
  Age: 44 Year
  Sex: Female

DRUGS (2)
  1. AMOXICILLIN AND CLAVULANATE POTASSIUM [Suspect]
     Indication: OTITIS MEDIA
     Route: 048
     Dates: start: 20040214, end: 20040214
  2. DAFALGAN [Suspect]
     Dosage: 500MG PER DAY
     Route: 048
     Dates: start: 20040214, end: 20040214

REACTIONS (4)
  - ANGIONEUROTIC OEDEMA [None]
  - CYANOSIS [None]
  - DYSPNOEA [None]
  - FACE OEDEMA [None]
